FAERS Safety Report 8315575-X (Version None)
Quarter: 2012Q2

REPORT INFORMATION
  Report Type: 
  Country: None (occurrence: None)
  Receive Date: 20120426
  Receipt Date: 20120420
  Transmission Date: 20120825
  Serious: Yes (Other)
  Sender: FDA-Public Use
  Company Number: US-ROCHE-1022329

PATIENT
  Sex: Female
  Weight: 46.762 kg

DRUGS (4)
  1. ZOLOFT [Concomitant]
     Indication: DEPRESSION
     Dates: start: 19990101
  2. BENZOYL PEROXIDE [Concomitant]
     Dates: start: 19990101, end: 20050101
  3. ACCUTANE [Suspect]
     Indication: ACNE
     Route: 065
     Dates: start: 19990901, end: 20010101
  4. ACCUTANE [Suspect]
     Route: 065
     Dates: start: 20020101, end: 20030101

REACTIONS (12)
  - BIPOLAR DISORDER [None]
  - INTESTINAL OBSTRUCTION [None]
  - ANAEMIA [None]
  - INFLAMMATORY BOWEL DISEASE [None]
  - SUICIDAL IDEATION [None]
  - INTESTINAL HAEMORRHAGE [None]
  - DEPRESSION [None]
  - IRRITABLE BOWEL SYNDROME [None]
  - CROHN'S DISEASE [None]
  - COLITIS ULCERATIVE [None]
  - HYPERTENSION [None]
  - INSOMNIA [None]
